FAERS Safety Report 19735184 (Version 3)
Quarter: 2021Q4

REPORT INFORMATION
  Report Type: Spontaneous
  Country: US (occurrence: US)
  Receive Date: 20210823
  Receipt Date: 20211029
  Transmission Date: 20220304
  Serious: No
  Sender: FDA-Public Use
  Company Number: US-PFIZER INC-2021363814

PATIENT
  Age: 65 Year
  Sex: Female
  Weight: 57.61 kg

DRUGS (15)
  1. TOZINAMERAN [Suspect]
     Active Substance: TOZINAMERAN
     Indication: COVID-19 immunisation
     Dosage: DOSE 2, SINGLE
     Route: 030
     Dates: start: 20210329, end: 20210329
  2. MEDROL [Suspect]
     Active Substance: METHYLPREDNISOLONE
     Indication: Systemic lupus erythematosus
     Dosage: SHORT-TERM INCREASE OF THE MEDROL
  3. MEDROL [Suspect]
     Active Substance: METHYLPREDNISOLONE
     Dosage: 2 MG
  4. MEDROL [Suspect]
     Active Substance: METHYLPREDNISOLONE
     Dosage: 6 MG
     Dates: end: 20210310
  5. MEDROL [Suspect]
     Active Substance: METHYLPREDNISOLONE
     Dosage: 8 MG
     Dates: start: 20210311, end: 20210313
  6. MEDROL [Suspect]
     Active Substance: METHYLPREDNISOLONE
     Dosage: 6 MG
     Dates: start: 20210314
  7. MEDROL [Suspect]
     Active Substance: METHYLPREDNISOLONE
     Dosage: UNK
  8. OMEPRAZOLE [Concomitant]
     Active Substance: OMEPRAZOLE
     Indication: Gastrooesophageal reflux disease
     Dosage: 20 MG/DAILY
     Route: 048
     Dates: start: 1990
  9. SYNTHROID [Concomitant]
     Active Substance: LEVOTHYROXINE SODIUM
     Indication: Hypothyroidism
     Dosage: 50 MG, DAILY
     Route: 048
     Dates: start: 2006
  10. MINALAX [Concomitant]
     Indication: Irritable bowel syndrome
     Dosage: 17 MG, DAILY
     Route: 048
     Dates: start: 2001
  11. ATENOLOL [Concomitant]
     Active Substance: ATENOLOL
     Indication: Syncope
     Dosage: 125 MG
     Route: 048
     Dates: start: 1990
  12. PROAIR HFA [Concomitant]
     Active Substance: ALBUTEROL SULFATE
     Indication: Asthma
     Dosage: UNK
     Dates: start: 2019
  13. XANAX [Concomitant]
     Active Substance: ALPRAZOLAM
     Indication: Post-traumatic stress disorder
     Dosage: 0.25 MG
     Dates: start: 201905
  14. XANAX [Concomitant]
     Active Substance: ALPRAZOLAM
     Indication: Gastric disorder
  15. CHILDRENS BENADRYL ALLERGY [Concomitant]
     Active Substance: DIPHENHYDRAMINE HYDROCHLORIDE
     Indication: Hypersensitivity
     Dosage: 12.5 MG
     Dates: start: 2005

REACTIONS (11)
  - Tinnitus [Unknown]
  - Pyrexia [Unknown]
  - Oral discomfort [Recovered/Resolved]
  - Erythema [Recovered/Resolved]
  - Cough [Recovered/Resolved]
  - Arthralgia [Unknown]
  - Oedema [Recovered/Resolved]
  - Inflammation [Unknown]
  - Paraesthesia [Unknown]
  - Hypotension [Recovered/Resolved]
  - Bronchospasm [Recovered/Resolved]

NARRATIVE: CASE EVENT DATE: 20210101
